FAERS Safety Report 5156738-4 (Version None)
Quarter: 2006Q4

REPORT INFORMATION
  Report Type: 
  Country: None (occurrence: None)
  Receive Date: 20061122
  Receipt Date: 20061114
  Transmission Date: 20070319
  Serious: Yes (Death, Life-Threatening, Hospitalization)
  Sender: FDA-Public Use
  Company Number: IN-MERCK-0611USA05198

PATIENT
  Age: 55 Year
  Sex: Male

DRUGS (1)
  1. PRIMAXIN [Suspect]
     Indication: POSTOPERATIVE INFECTION
     Route: 042

REACTIONS (2)
  - DIARRHOEA [None]
  - PSEUDOMEMBRANOUS COLITIS [None]
